FAERS Safety Report 20743257 (Version 1)
Quarter: 2022Q2

REPORT INFORMATION
  Report Type: Spontaneous
  Country: NL (occurrence: NL)
  Receive Date: 20220425
  Receipt Date: 20220425
  Transmission Date: 20220721
  Serious: Yes (Hospitalization, Other)
  Sender: FDA-Public Use
  Company Number: None

PATIENT
  Age: 63 Year
  Sex: Male
  Weight: 69 kg

DRUGS (8)
  1. EMPAGLIFLOZIN [Suspect]
     Active Substance: EMPAGLIFLOZIN
     Indication: Type 2 diabetes mellitus
     Dates: start: 2018
  2. EMPAGLIFLOZIN [Suspect]
     Active Substance: EMPAGLIFLOZIN
     Dates: start: 2019, end: 20211209
  3. EMPAGLIFLOZIN [Suspect]
     Active Substance: EMPAGLIFLOZIN
     Dates: start: 2019
  4. THIAMINE TABLET  50MG / Brand name not specified [Concomitant]
     Indication: Product used for unknown indication
  5. AMLODIPINE TABLET   5MG / Brand name not specified [Concomitant]
     Indication: Product used for unknown indication
  6. CLOPIDOGREL TABLET   75MG / Brand name not specified [Concomitant]
     Indication: Product used for unknown indication
  7. METFORMINE TABLET   850MG / Brand name not specified [Concomitant]
     Indication: Product used for unknown indication
  8. ATORVASTATIN [Concomitant]
     Active Substance: ATORVASTATIN
     Indication: Product used for unknown indication
     Dosage: TABLET, 20 MG (MILLIGRAM)

REACTIONS (1)
  - Diabetic ketoacidosis [Recovered/Resolved]

NARRATIVE: CASE EVENT DATE: 20211206
